FAERS Safety Report 18453973 (Version 2)
Quarter: 2021Q1

REPORT INFORMATION
  Report Type: Report from Study
  Country: US (occurrence: US)
  Receive Date: 20201102
  Receipt Date: 20210129
  Transmission Date: 20210419
  Serious: Yes (Death, Life-Threatening, Other)
  Sender: FDA-Public Use
  Company Number: NVSC2020US291491

PATIENT
  Age: 78 Year
  Sex: Male

DRUGS (3)
  1. CYCLOPHOSPHAMIDE. [Concomitant]
     Active Substance: CYCLOPHOSPHAMIDE
     Indication: CHEMOTHERAPY
     Dosage: UNK
     Route: 065
  2. FLUDARABINE [Concomitant]
     Active Substance: FLUDARABINE PHOSPHATE
     Indication: CHEMOTHERAPY
     Route: 065
  3. KYMRIAH [Suspect]
     Active Substance: TISAGENLECLEUCEL
     Indication: DIFFUSE LARGE B-CELL LYMPHOMA
     Dosage: 2.2 UNK (2.2 E8 CAR?POSITIVE VIABLE T CELLS)
     Route: 065
     Dates: start: 20200205

REACTIONS (9)
  - Neurotoxicity [Fatal]
  - Malignant neoplasm progression [Unknown]
  - Depressed level of consciousness [Unknown]
  - Aphasia [Unknown]
  - Pyrexia [Unknown]
  - Cytokine release syndrome [Recovered/Resolved]
  - Hypoxia [Unknown]
  - Haemoglobin decreased [Unknown]
  - Diffuse large B-cell lymphoma [Unknown]
